FAERS Safety Report 6806726-4 (Version None)
Quarter: 2010Q2

REPORT INFORMATION
  Report Type: 
  Country: None (occurrence: None)
  Receive Date: 20100629
  Receipt Date: 20080624
  Transmission Date: 20101027
  Serious: No
  Sender: FDA-Public Use
  Company Number: US-PFIZER INC-2008035868

PATIENT
  Sex: Female
  Weight: 75 kg

DRUGS (8)
  1. ALPRAZOLAM [Suspect]
     Indication: ANXIETY
  2. ALPRAZOLAM [Suspect]
     Indication: PANIC ATTACK
  3. PREDNISONE [Concomitant]
  4. ESTRADIOL [Concomitant]
  5. CARDIZEM [Concomitant]
  6. GLIPIZIDE [Concomitant]
  7. ALBUTEROL [Concomitant]
  8. DUONEB [Concomitant]

REACTIONS (4)
  - CIRCADIAN RHYTHM SLEEP DISORDER [None]
  - DYSPNOEA [None]
  - FEELING ABNORMAL [None]
  - SOMNOLENCE [None]
